FAERS Safety Report 19293388 (Version 1)
Quarter: 2021Q2

REPORT INFORMATION
  Report Type: Spontaneous
  Country: US (occurrence: US)
  Receive Date: 20210523
  Receipt Date: 20210523
  Transmission Date: 20210717
  Serious: Yes (Disabling, Other)
  Sender: FDA-Public Use
  Company Number: None

PATIENT
  Age: 62 Year
  Sex: Female
  Weight: 63.9 kg

DRUGS (9)
  1. ZINC. [Concomitant]
     Active Substance: ZINC
  2. SUMATRIPTAN. [Concomitant]
     Active Substance: SUMATRIPTAN
  3. CLARITIN [Concomitant]
     Active Substance: LORATADINE
  4. TURMERIC [Concomitant]
     Active Substance: HERBALS\TURMERIC
  5. MULTIVITAMINS [Concomitant]
     Active Substance: VITAMINS
  6. CALCIUM [Concomitant]
     Active Substance: CALCIUM
  7. AMINO ACIDS [Concomitant]
     Active Substance: AMINO ACIDS, SOURCE UNSPECIFIED
  8. COLLAGEN [Concomitant]
     Active Substance: COLLAGEN
  9. EMGALITY [Suspect]
     Active Substance: GALCANEZUMAB-GNLM
     Indication: MIGRAINE
     Dosage: ?          QUANTITY:1 INJECTION(S);OTHER FREQUENCY:1 X PER MONTH;?
     Route: 058
     Dates: start: 20210427, end: 20210427

REACTIONS (13)
  - Vertigo [None]
  - Hot flush [None]
  - Weight increased [None]
  - Nausea [None]
  - Insomnia [None]
  - Head discomfort [None]
  - Constipation [None]
  - Dizziness [None]
  - Chromaturia [None]
  - Vomiting [None]
  - Abdominal distension [None]
  - Tremor [None]
  - Urine abnormality [None]

NARRATIVE: CASE EVENT DATE: 20210427
